FAERS Safety Report 7793053-4 (Version None)
Quarter: 2011Q3

REPORT INFORMATION
  Report Type: 
  Country: None (occurrence: None)
  Receive Date: 20110930
  Receipt Date: 20110930
  Transmission Date: 20111222
  Serious: Yes (Other)
  Sender: FDA-Public Use
  Company Number: None

PATIENT
  Sex: Female
  Weight: 54.4316 kg

DRUGS (1)
  1. MERCAPTOPURINE [Suspect]
     Indication: COELIAC DISEASE
     Dosage: 1 A DAY DAILY
     Dates: start: 20110124, end: 20110411

REACTIONS (2)
  - FATIGUE [None]
  - CONFUSIONAL STATE [None]
